FAERS Safety Report 21338613 (Version 1)
Quarter: 2022Q3

REPORT INFORMATION
  Report Type: Spontaneous
  Country: JP (occurrence: JP)
  Receive Date: 20220915
  Receipt Date: 20220915
  Transmission Date: 20221027
  Serious: Yes (Other)
  Sender: FDA-Public Use
  Company Number: JP-GUERBET-JP-20220122

PATIENT
  Age: 74 Year
  Sex: Female

DRUGS (2)
  1. LIPIODOL [Suspect]
     Active Substance: ETHIODIZED OIL
     Indication: Balloon-occluded retrograde transvenous obliteration
     Dosage: A MIXTURE OF 3 ML OF LIPIODOL WITH 1 ML OF HISTOACRYL
     Route: 042
  2. HISTOACRYL [Concomitant]
     Active Substance: ENBUCRILATE
     Indication: Balloon-occluded retrograde transvenous obliteration
     Dosage: A MIXTURE OF 3 ML OF LIPIODOL WITH 1 ML OF HISTOACRYL
     Route: 042

REACTIONS (3)
  - Pleural effusion [Recovering/Resolving]
  - Ascites [Recovering/Resolving]
  - Product use in unapproved indication [Recovering/Resolving]
